FAERS Safety Report 18058837 (Version 1)
Quarter: 2020Q3

REPORT INFORMATION
  Report Type: Other
  Country: AR (occurrence: AR)
  Receive Date: 20200723
  Receipt Date: 20200723
  Transmission Date: 20201103
  Serious: Yes (Other)
  Sender: FDA-Public Use
  Company Number: AR-ROCHE-2646425

PATIENT

DRUGS (1)
  1. CAPECITABINE. [Suspect]
     Active Substance: CAPECITABINE
     Indication: RECTAL CANCER
     Route: 065

REACTIONS (7)
  - Enteritis [Unknown]
  - Dermatitis [Unknown]
  - Proctitis [Unknown]
  - Rectal haemorrhage [Unknown]
  - Dysuria [Unknown]
  - Anal incontinence [Unknown]
  - Abdominal pain [Unknown]
